FAERS Safety Report 6996964-2 (Version None)
Quarter: 2010Q3

REPORT INFORMATION
  Report Type: 
  Country: None (occurrence: None)
  Receive Date: 20100918
  Receipt Date: 20090825
  Transmission Date: 20110219
  Serious: No
  Sender: FDA-Public Use
  Company Number: US-WYE-H10715009

PATIENT
  Sex: Female

DRUGS (4)
  1. EFFEXOR XR [Suspect]
     Indication: ANXIETY
     Route: 048
     Dates: start: 20090815, end: 20090817
  2. EFFEXOR XR [Suspect]
     Route: 048
     Dates: start: 20090818, end: 20090820
  3. EFFEXOR XR [Suspect]
     Route: 048
     Dates: start: 20090821
  4. ZOCOR [Concomitant]

REACTIONS (2)
  - NERVOUSNESS [None]
  - SOCIAL AVOIDANT BEHAVIOUR [None]
